FAERS Safety Report 18355513 (Version 1)
Quarter: 2020Q4

REPORT INFORMATION
  Report Type: Spontaneous
  Country: US (occurrence: US)
  Receive Date: 20201006
  Receipt Date: 20201006
  Transmission Date: 20210114
  Serious: No
  Sender: FDA-Public Use
  Company Number: None

PATIENT
  Age: 63 Year
  Sex: Male
  Weight: 72 kg

DRUGS (1)
  1. NAFCILLIN [Suspect]
     Active Substance: NAFCILLIN SODIUM
     Indication: ENDOCARDITIS
     Dosage: ?          OTHER STRENGTH:2GM/VIL;?
     Route: 042
     Dates: start: 20181231

REACTIONS (2)
  - Thrombocytopenia [None]
  - Rash [None]

NARRATIVE: CASE EVENT DATE: 20190122
